FAERS Safety Report 6593523-0 (Version None)
Quarter: 2010Q1

REPORT INFORMATION
  Report Type: 
  Country: None (occurrence: None)
  Receive Date: 20100222
  Receipt Date: 20090622
  Transmission Date: 20100710
  Serious: No
  Sender: FDA-Public Use
  Company Number: US-BRISTOL-MYERS SQUIBB COMPANY-14673842

PATIENT
  Age: 53 Year
  Sex: Female
  Weight: 100 kg

DRUGS (13)
  1. ORENCIA [Suspect]
     Indication: RHEUMATOID ARTHRITIS
     Dates: start: 20080827
  2. METHOTREXATE [Suspect]
     Indication: RHEUMATOID ARTHRITIS
     Dates: start: 20080827, end: 20090101
  3. PREDNISONE [Concomitant]
  4. NORVASC [Concomitant]
  5. NASACORT [Concomitant]
     Dosage: SPRAY
  6. LIDEX [Concomitant]
     Dosage: OINTMENT
  7. NORCO [Concomitant]
  8. EVOXAC [Concomitant]
  9. BENADRYL [Concomitant]
  10. CHLOR-TRIMETON [Concomitant]
  11. RESTASIS [Concomitant]
  12. BIOTENE ORALBALANCE [Concomitant]
     Dosage: MOUTHWASH
  13. BLINK [Concomitant]

REACTIONS (2)
  - ABDOMINAL PAIN [None]
  - FATIGUE [None]
